FAERS Safety Report 13661231 (Version 1)
Quarter: 2017Q2

REPORT INFORMATION
  Report Type: Report from Study
  Country: US (occurrence: US)
  Receive Date: 20170616
  Receipt Date: 20170616
  Transmission Date: 20170830
  Serious: No
  Sender: FDA-Public Use
  Company Number: US-US WORLDMEDS, LLC-USW201702-000274

PATIENT
  Sex: Female
  Weight: 64.41 kg

DRUGS (6)
  1. RYTARY [Concomitant]
     Active Substance: CARBIDOPA\LEVODOPA
  2. AMANTADINE. [Concomitant]
     Active Substance: AMANTADINE HYDROCHLORIDE
  3. APOKYN [Suspect]
     Active Substance: APOMORPHINE HYDROCHLORIDE
     Indication: PARKINSON^S DISEASE
     Route: 058
     Dates: start: 20160804
  4. RYTARY [Concomitant]
     Active Substance: CARBIDOPA\LEVODOPA
  5. SINEMET [Concomitant]
     Active Substance: CARBIDOPA\LEVODOPA
  6. REQUIP [Concomitant]
     Active Substance: ROPINIROLE HYDROCHLORIDE

REACTIONS (1)
  - Dyskinesia [Not Recovered/Not Resolved]
